FAERS Safety Report 7510021-8 (Version None)
Quarter: 2011Q2

REPORT INFORMATION
  Report Type: 
  Country: None (occurrence: None)
  Receive Date: 20110527
  Receipt Date: 20110519
  Transmission Date: 20111010
  Serious: Yes (Other)
  Sender: FDA-Public Use
  Company Number: B0721782A

PATIENT
  Sex: Male
  Weight: 62 kg

DRUGS (3)
  1. OFATUMUMAB [Suspect]
     Dosage: 58MG CUMULATIVE DOSE
     Route: 042
     Dates: start: 20110516
  2. AMLODIPINE [Concomitant]
     Indication: HYPERTENSION
     Dosage: 2.25MG PER DAY
     Route: 048
  3. NEBIVOLOL HCL [Concomitant]
     Indication: HYPERTENSION
     Dosage: 1.25MG PER DAY
     Route: 048

REACTIONS (1)
  - SINUS BRADYCARDIA [None]
